FAERS Safety Report 15567487 (Version 1)
Quarter: 2018Q4

REPORT INFORMATION
  Report Type: Report from Study
  Country: US (occurrence: US)
  Receive Date: 20181030
  Receipt Date: 20181030
  Transmission Date: 20190205
  Serious: Yes (Hospitalization)
  Sender: FDA-Public Use
  Company Number: PHHY2018US135818

PATIENT
  Age: 91 Year
  Sex: Male
  Weight: 75.7 kg

DRUGS (2)
  1. LAMPRENE [Suspect]
     Active Substance: CLOFAZIMINE
     Indication: PNEUMONIA
  2. LAMPRENE [Suspect]
     Active Substance: CLOFAZIMINE
     Indication: MYCOBACTERIUM ABSCESSUS INFECTION
     Dosage: 100 MG, QD
     Route: 048
     Dates: start: 20181011, end: 20181019

REACTIONS (2)
  - Leukocytosis [Unknown]
  - Tremor [Recovered/Resolved]

NARRATIVE: CASE EVENT DATE: 20181011
